FAERS Safety Report 5579237-4 (Version None)
Quarter: 2007Q4

REPORT INFORMATION
  Report Type: 
  Country: None (occurrence: None)
  Receive Date: 20071228
  Receipt Date: 20071214
  Transmission Date: 20080405
  Serious: Yes (Hospitalization)
  Sender: FDA-Public Use
  Company Number: 2007BI022118

PATIENT
  Age: 75 Year
  Sex: Female
  Weight: 45.8133 kg

DRUGS (1)
  1. AVONEX [Suspect]
     Indication: MULTIPLE SCLEROSIS
     Dosage: 30 UG; QW; IM
     Route: 030
     Dates: start: 20071005, end: 20071005

REACTIONS (3)
  - ABASIA [None]
  - MUSCULAR WEAKNESS [None]
  - URINARY TRACT INFECTION [None]
